FAERS Safety Report 7618975-6 (Version None)
Quarter: 2011Q3

REPORT INFORMATION
  Report Type: 
  Country: None (occurrence: None)
  Receive Date: 20110718
  Receipt Date: 20110708
  Transmission Date: 20111222
  Serious: Yes (Hospitalization)
  Sender: FDA-Public Use
  Company Number: BR-SANOFI-AVENTIS-2011SA043895

PATIENT
  Age: 84 Year
  Sex: Female
  Weight: 45 kg

DRUGS (6)
  1. METOPROLOL SUCCINATE [Concomitant]
     Indication: BLOOD PRESSURE
     Route: 048
  2. SIMVASTATIN [Concomitant]
     Route: 048
  3. AUTOPEN 24 [Suspect]
     Indication: DEVICE THERAPY
  4. METFORMIN HCL [Concomitant]
     Route: 048
  5. PANTOPRAZOLE SODIUM [Concomitant]
     Indication: GASTRIC DISORDER
     Route: 048
  6. LANTUS [Suspect]
     Route: 058
     Dates: start: 20080101

REACTIONS (7)
  - SLUGGISHNESS [None]
  - HYPOGLYCAEMIA [None]
  - HYPERGLYCAEMIA [None]
  - PYREXIA [None]
  - PNEUMONIA [None]
  - KIDNEY INFECTION [None]
  - SOMNOLENCE [None]
